FAERS Safety Report 6814956-0 (Version None)
Quarter: 2010Q3

REPORT INFORMATION
  Report Type: 
  Country: None (occurrence: None)
  Receive Date: 20100702
  Receipt Date: 20100628
  Transmission Date: 20110219
  Serious: Yes (Hospitalization)
  Sender: FDA-Public Use
  Company Number: FR-ROCHE-712318

PATIENT
  Age: 70 Year
  Sex: Female

DRUGS (6)
  1. ROCEPHIN [Suspect]
     Indication: ANTIBIOTIC THERAPY
     Route: 065
     Dates: start: 20100222, end: 20100326
  2. AVASTIN [Suspect]
     Indication: BREAST CANCER METASTATIC
     Route: 042
     Dates: start: 20100114, end: 20100220
  3. PACLITAXEL [Suspect]
     Indication: BREAST CANCER METASTATIC
     Route: 042
     Dates: start: 20100114, end: 20100220
  4. CARBOPLATIN [Suspect]
     Indication: BREAST CANCER METASTATIC
     Dosage: FORM: INFUSION
     Route: 042
     Dates: start: 20100114, end: 20100220
  5. CORDARONE [Suspect]
     Indication: ANTIBIOTIC THERAPY
     Route: 065
     Dates: start: 20100222
  6. AUGMENTIN '125' [Suspect]
     Indication: ANTIBIOTIC THERAPY
     Dosage: DOSE: 1 GRAM THIRD DAILY
     Route: 048
     Dates: start: 20100222, end: 20100308

REACTIONS (2)
  - EXFOLIATIVE RASH [None]
  - SKIN ULCER [None]
